FAERS Safety Report 15483323 (Version 1)
Quarter: 2018Q4

REPORT INFORMATION
  Report Type: Spontaneous
  Country: US (occurrence: US)
  Receive Date: 20181010
  Receipt Date: 20181010
  Transmission Date: 20190205
  Serious: No
  Sender: FDA-Public Use
  Company Number: US-PFIZER INC-2018401496

PATIENT
  Age: 59 Year
  Sex: Female
  Weight: 104.3 kg

DRUGS (3)
  1. LYRICA [Suspect]
     Active Substance: PREGABALIN
     Indication: MYALGIA
     Dosage: 225 MG, DAILY (3 CAPSULES A DAY)
     Route: 048
     Dates: start: 20180925
  2. LYRICA [Suspect]
     Active Substance: PREGABALIN
     Indication: FIBROMYALGIA
     Dosage: UNK
     Route: 048
  3. LYRICA [Suspect]
     Active Substance: PREGABALIN
     Indication: NEURALGIA
     Dosage: 225 MG, DAILY (3 CAPSULES A DAY)
     Route: 048

REACTIONS (5)
  - Drug effect delayed [Unknown]
  - Therapeutic response unexpected [Unknown]
  - Product dose omission [Unknown]
  - Pre-existing condition improved [Unknown]
  - Expired product administered [Unknown]

NARRATIVE: CASE EVENT DATE: 20180925
